FAERS Safety Report 13703526 (Version 1)
Quarter: 2017Q2

REPORT INFORMATION
  Report Type: Report from Study
  Country: US (occurrence: US)
  Receive Date: 20170629
  Receipt Date: 20170629
  Transmission Date: 20170830
  Serious: Yes (Hospitalization)
  Sender: FDA-Public Use
  Company Number: US-ACTELION-A-NJ2017-148716

PATIENT
  Age: 39 Year
  Sex: Female
  Weight: 81.63 kg

DRUGS (7)
  1. UPTRAVI [Suspect]
     Active Substance: SELEXIPAG
     Indication: PULMONARY HYPERTENSION
     Dosage: 1000 MCG, BID
     Route: 048
     Dates: start: 20170202
  2. UPTRAVI [Suspect]
     Active Substance: SELEXIPAG
     Dosage: 200 MCG, BID
     Route: 048
     Dates: start: 20161209
  3. ELIQUIS [Concomitant]
     Active Substance: APIXABAN
  4. ADEMPAS [Concomitant]
     Active Substance: RIOCIGUAT
  5. UPTRAVI [Suspect]
     Active Substance: SELEXIPAG
     Dosage: 800 MCG, BID
     Route: 048
  6. OPSUMIT [Suspect]
     Active Substance: MACITENTAN
     Indication: PULMONARY HYPERTENSION
     Dosage: 10 MG, QD
     Route: 048
     Dates: start: 20160915
  7. BUMETANIDE. [Concomitant]
     Active Substance: BUMETANIDE

REACTIONS (16)
  - Gingival swelling [Unknown]
  - Lip swelling [Unknown]
  - Peripheral swelling [Recovered/Resolved]
  - Renal impairment [Unknown]
  - Dyspnoea [Recovering/Resolving]
  - Headache [Unknown]
  - Fluid overload [Recovered/Resolved]
  - Pneumonia [Recovering/Resolving]
  - Toothache [Unknown]
  - Bone pain [Unknown]
  - Cough [Unknown]
  - Urticaria [Recovered/Resolved]
  - Pain [Unknown]
  - Hypersensitivity [Unknown]
  - Swollen tongue [Unknown]
  - Malaise [Unknown]

NARRATIVE: CASE EVENT DATE: 20170202
